FAERS Safety Report 20467008 (Version 1)
Quarter: 2022Q1

REPORT INFORMATION
  Report Type: Spontaneous
  Country: DE (occurrence: DE)
  Receive Date: 20220214
  Receipt Date: 20220214
  Transmission Date: 20220423
  Serious: Yes (Other)
  Sender: FDA-Public Use
  Company Number: DE-002147023-NVSC2022DE016050

PATIENT
  Sex: Female
  Weight: 68 kg

DRUGS (2)
  1. NEBIVOLOL [Suspect]
     Active Substance: NEBIVOLOL
     Indication: Product used for unknown indication
     Dosage: UNK
     Route: 065
     Dates: start: 2015
  2. LEVOTHYROXINE SODIUM [Suspect]
     Active Substance: LEVOTHYROXINE SODIUM
     Indication: Product used for unknown indication
     Dosage: UNK
     Route: 065
     Dates: start: 2011

REACTIONS (4)
  - Muscular weakness [Unknown]
  - Thrombosis [Unknown]
  - Musculoskeletal stiffness [Unknown]
  - Swelling [Unknown]

NARRATIVE: CASE EVENT DATE: 20210803
